FAERS Safety Report 14943092 (Version 2)
Quarter: 2018Q4

REPORT INFORMATION
  Report Type: Spontaneous
  Country: PT (occurrence: PT)
  Receive Date: 20180528
  Receipt Date: 20181220
  Transmission Date: 20190204
  Serious: Yes (Hospitalization, Other)
  Sender: FDA-Public Use
  Company Number: PT-AUROBINDO-AUR-APL-2018-027744

PATIENT
  Age: 66 Year
  Sex: Female

DRUGS (4)
  1. VENLAFAXINE [Suspect]
     Active Substance: VENLAFAXINE HYDROCHLORIDE
     Indication: DEPRESSIVE SYMPTOM
     Dosage: 150 MILLIGRAM, ONCE A DAY
     Route: 048
  2. CARBAMAZEPINE. [Concomitant]
     Active Substance: CARBAMAZEPINE
     Indication: DEPRESSIVE SYMPTOM
     Dosage: 400 MG
     Route: 065
  3. CYAMEMAZINE [Concomitant]
     Active Substance: CYAMEMAZINE
     Indication: DEPRESSIVE SYMPTOM
     Dosage: 100 MG, QD
  4. LORAZEPAM. [Concomitant]
     Active Substance: LORAZEPAM
     Indication: DEPRESSIVE SYMPTOM
     Dosage: 5 MG, QD

REACTIONS (30)
  - Vitamin D deficiency [Recovered/Resolved]
  - Cystitis [Recovered/Resolved]
  - Pyrexia [Recovered/Resolved]
  - Acidosis [Recovered/Resolved]
  - Cardiac failure congestive [Recovered/Resolved]
  - Pollakiuria [Recovered/Resolved]
  - Acute pulmonary oedema [Recovered/Resolved]
  - Ventricular tachycardia [Recovered/Resolved]
  - Sinus tachycardia [Recovered/Resolved]
  - Dysuria [Recovered/Resolved]
  - Renal impairment [Recovered/Resolved]
  - Fatigue [Recovered/Resolved]
  - Blood creatinine increased [Recovered/Resolved]
  - Metanephrine urine increased [Recovered/Resolved]
  - Azotaemia [Recovered/Resolved]
  - Dehydration [Recovered/Resolved]
  - Hypocalcaemia [Recovered/Resolved]
  - Phaeochromocytoma [Recovered/Resolved]
  - Back pain [Recovered/Resolved]
  - Bundle branch block left [Recovered/Resolved]
  - Overdose [Recovered/Resolved]
  - Hypertension [Recovered/Resolved]
  - Metabolic acidosis [Recovered/Resolved]
  - Depression [Recovered/Resolved]
  - Renal artery stenosis [Recovered/Resolved]
  - Acute kidney injury [Recovered/Resolved]
  - Anxiety [Recovered/Resolved]
  - Leukocyturia [Recovered/Resolved]
  - Pyelonephritis [Recovered/Resolved]
  - Ventricular dysfunction [Recovered/Resolved]
